FAERS Safety Report 8208385-5 (Version None)
Quarter: 2012Q1

REPORT INFORMATION
  Report Type: 
  Country: None (occurrence: None)
  Receive Date: 20120314
  Receipt Date: 20120306
  Transmission Date: 20120608
  Serious: Yes (Hospitalization, Other)
  Sender: FDA-Public Use
  Company Number: US-ABBOTT-12P-163-0913031-00

PATIENT
  Sex: Female
  Weight: 81.72 kg

DRUGS (6)
  1. SYNTHROID [Concomitant]
     Indication: HYPOTHYROIDISM
  2. HUMIRA [Suspect]
     Indication: PSORIASIS
     Route: 058
     Dates: start: 20101201, end: 20111001
  3. LOTRIL [Concomitant]
     Indication: HYPERTENSION
  4. ZITHROMAX [Suspect]
     Indication: UPPER RESPIRATORY TRACT INFECTION
     Dates: start: 20111113, end: 20111117
  5. HUMIRA [Suspect]
     Route: 058
     Dates: start: 20120101
  6. ESTRACE [Concomitant]
     Indication: HORMONE REPLACEMENT THERAPY

REACTIONS (3)
  - BLINDNESS TRANSIENT [None]
  - UPPER RESPIRATORY TRACT INFECTION [None]
  - PAPILLOEDEMA [None]
